FAERS Safety Report 10149463 (Version 2)
Quarter: 2014Q2

REPORT INFORMATION
  Report Type: Spontaneous
  Country: US (occurrence: US)
  Receive Date: 20140502
  Receipt Date: 20140502
  Transmission Date: 20141212
  Serious: Yes (Hospitalization, Disabling)
  Sender: FDA-Public Use
  Company Number: US-US-EMD SERONO, INC.-232620J09USA

PATIENT
  Age: 45 Year
  Sex: Female

DRUGS (9)
  1. REBIF [Suspect]
     Indication: MULTIPLE SCLEROSIS
     Route: 058
     Dates: start: 20070926, end: 20091027
  2. REBIF [Suspect]
     Route: 058
     Dates: start: 20091105
  3. BACLOFEN PUMP [Concomitant]
     Indication: MUSCLE SPASMS
     Dates: start: 2005
  4. FOSAMAX [Concomitant]
     Indication: OSTEOPOROSIS
  5. HIPREX [Concomitant]
     Indication: BLADDER DISORDER
  6. VITAMIN E [Concomitant]
  7. CRANBERRY [Concomitant]
  8. FISH OIL [Concomitant]
  9. FLAX SEED [Concomitant]

REACTIONS (6)
  - Hip fracture [Unknown]
  - Femur fracture [Unknown]
  - Coagulopathy [Unknown]
  - White blood cell count increased [Unknown]
  - Mobility decreased [Not Recovered/Not Resolved]
  - Urinary tract infection [Unknown]
